FAERS Safety Report 8847380 (Version 2)
Quarter: 2012Q4

REPORT INFORMATION
  Report Type: 
  Country: HR (occurrence: HR)
  Receive Date: 20121018
  Receipt Date: 20121129
  Transmission Date: 20130627
  Serious: Yes (Other)
  Sender: FDA-Public Use
  Company Number: HR-ELI_LILLY_AND_COMPANY-HR201210001966

PATIENT
  Sex: Female

DRUGS (2)
  1. OLANZAPINE [Suspect]
     Indication: BIPOLAR DISORDER
     Dosage: 210 mg, unknown
     Route: 030
     Dates: start: 20120926
  2. ZYPREXA VELOTAB [Suspect]
     Dosage: 10 mg, unknown

REACTIONS (3)
  - Fear [Recovered/Resolved]
  - Agitation [Recovered/Resolved]
  - Disorientation [Recovered/Resolved]
